FAERS Safety Report 16048782 (Version 3)
Quarter: 2019Q2

REPORT INFORMATION
  Report Type: Spontaneous
  Country: US (occurrence: US)
  Receive Date: 20190307
  Receipt Date: 20190625
  Transmission Date: 20190711
  Serious: No
  Sender: FDA-Public Use
  Company Number: US-SA-2019SA063709

PATIENT
  Age: 43 Year
  Sex: Female

DRUGS (1)
  1. KEVZARA [Suspect]
     Active Substance: SARILUMAB
     Indication: PRODUCT USED FOR UNKNOWN INDICATION
     Dosage: 200 MG, QOW
     Route: 058
     Dates: start: 201902

REACTIONS (6)
  - Injection site warmth [Unknown]
  - Skin warm [Unknown]
  - Rash pruritic [Unknown]
  - Injection site pruritus [Unknown]
  - Headache [Unknown]
  - Injection site rash [Unknown]
